FAERS Safety Report 4511560-4 (Version None)
Quarter: 2004Q4

REPORT INFORMATION
  Report Type: 
  Country: None (occurrence: None)
  Receive Date: 20041129
  Receipt Date: 20040928
  Transmission Date: 20050328
  Serious: Yes (Other)
  Sender: FDA-Public Use
  Company Number: US-BRISTOL-MYERS SQUIBB COMPANY-12714879

PATIENT
  Age: 68 Year
  Sex: Male
  Weight: 91 kg

DRUGS (9)
  1. ABILIFY [Suspect]
     Indication: GENERALISED ANXIETY DISORDER
     Dosage: DOSE INCREASED TO 15 MG/DAY IN SEP-2004 DUE TO ANXIETY.
     Dates: start: 20040608
  2. OMEPRAZOLE [Concomitant]
     Dates: start: 20010101
  3. VICODIN [Concomitant]
     Dates: start: 20040301
  4. HYDROCHLOROTHIAZIDE [Concomitant]
     Dates: start: 20030101
  5. POTASSIUM SUPPLEMENT [Concomitant]
  6. REMERON [Concomitant]
     Dates: start: 20010601
  7. LEXAPRO [Concomitant]
     Dates: start: 20030401
  8. KLONOPIN [Concomitant]
     Dates: start: 19990101
  9. PROPRANOLOL [Concomitant]
     Dates: start: 20021101

REACTIONS (3)
  - ANXIETY [None]
  - BLOOD CHOLESTEROL INCREASED [None]
  - BLOOD TRIGLYCERIDES INCREASED [None]
